FAERS Safety Report 10865606 (Version 1)
Quarter: 2015Q1

REPORT INFORMATION
  Report Type: Report from Study
  Country: US (occurrence: US)
  Receive Date: 20150224
  Receipt Date: 20150224
  Transmission Date: 20150721
  Serious: No
  Sender: FDA-Public Use
  Company Number: US-MYLANLABS-2014S1012706

PATIENT
  Age: 20 Year
  Sex: Female
  Weight: 53.5 kg

DRUGS (4)
  1. CLARAVIS [Suspect]
     Active Substance: ISOTRETINOIN
     Indication: ACNE
     Dosage: UNK
     Route: 048
     Dates: start: 2013
  2. AMNESTEEM [Suspect]
     Active Substance: ISOTRETINOIN
     Indication: ACNE
     Dosage: UNK
     Route: 048
     Dates: end: 201405
  3. AMNESTEEM [Suspect]
     Active Substance: ISOTRETINOIN
     Indication: ACNE
     Dosage: UNK
     Route: 048
     Dates: end: 201405
  4. ABSORICA [Suspect]
     Active Substance: ISOTRETINOIN
     Indication: ACNE
     Dosage: UNK
     Route: 048

REACTIONS (1)
  - Emotional disorder [Recovered/Resolved]

NARRATIVE: CASE EVENT DATE: 201405
